FAERS Safety Report 9038981 (Version 1)
Quarter: 2013Q1

REPORT INFORMATION
  Report Type: Spontaneous
  Country: US (occurrence: None)
  Receive Date: 20130123
  Receipt Date: 20130123
  Transmission Date: 20140127
  Serious: No
  Sender: FDA-Public Use
  Company Number: None

PATIENT
  Sex: 0

DRUGS (1)
  1. NASACORT [Suspect]

REACTIONS (11)
  - Steroid withdrawal syndrome [None]
  - Myalgia [None]
  - Arthralgia [None]
  - Nausea [None]
  - Weight decreased [None]
  - Decreased appetite [None]
  - Diarrhoea [None]
  - Pyrexia [None]
  - Anxiety [None]
  - Insomnia [None]
  - Gastrooesophageal reflux disease [None]
